FAERS Safety Report 15500420 (Version 1)
Quarter: 2018Q4

REPORT INFORMATION
  Report Type: Spontaneous
  Country: US (occurrence: US)
  Receive Date: 20181015
  Receipt Date: 20181015
  Transmission Date: 20190205
  Serious: No
  Sender: FDA-Public Use
  Company Number: US-DSJP-DSU-2018-140584

PATIENT
  Sex: Male

DRUGS (1)
  1. MORPHABOND ER [Suspect]
     Active Substance: MORPHINE SULFATE
     Indication: PAIN
     Dosage: 1 DF (TABLET), BID
     Route: 048
     Dates: start: 20180828, end: 201809

REACTIONS (3)
  - Feeling abnormal [Unknown]
  - Drug effect incomplete [Unknown]
  - Unevaluable event [Unknown]

NARRATIVE: CASE EVENT DATE: 201809
